FAERS Safety Report 6112347-1 (Version None)
Quarter: 2009Q1

REPORT INFORMATION
  Report Type: 
  Country: None (occurrence: None)
  Receive Date: 20090311
  Receipt Date: 20090311
  Transmission Date: 20090719
  Serious: Yes (Life-Threatening, Hospitalization, Disabling, Other)
  Sender: FDA-Public Use
  Company Number: None

PATIENT
  Age: 57 Year
  Sex: Male
  Weight: 109.0674 kg

DRUGS (4)
  1. ABILIFY [Suspect]
     Indication: SCHIZOPHRENIA
     Dosage: 30 MG
     Dates: start: 20090205, end: 20090209
  2. CLONAZEPAM [Suspect]
     Indication: SCHIZOPHRENIA
     Dosage: 2 MG 1/2 TABLET 1 MG
     Dates: start: 20090205, end: 20090209
  3. SEROQUEL [Suspect]
     Indication: SCHIZOPHRENIA
     Dosage: 200 MG 2 TABS 1965849-0585
     Dates: start: 20090205, end: 20090209
  4. DEPAKOTE [Suspect]
     Indication: SCHIZOPHRENIA
     Dosage: 500 MG TABS 1988164-05854
     Dates: start: 20090205, end: 20090209

REACTIONS (7)
  - BACK INJURY [None]
  - BALANCE DISORDER [None]
  - HEAD INJURY [None]
  - LOSS OF CONTROL OF LEGS [None]
  - NECK INJURY [None]
  - SOMNAMBULISM [None]
  - TERMINAL INSOMNIA [None]
